FAERS Safety Report 4615023-7 (Version None)
Quarter: 2005Q1

REPORT INFORMATION
  Report Type: 
  Country: None (occurrence: None)
  Receive Date: 20050322
  Receipt Date: 20050317
  Transmission Date: 20050727
  Serious: Yes (Other)
  Sender: FDA-Public Use
  Company Number: PHBS2005BE03867

PATIENT
  Age: 57 Year
  Sex: Female

DRUGS (4)
  1. ELTHYRONE [Concomitant]
     Dosage: 112.5 UG/D
  2. ELTHYRONE [Concomitant]
  3. STEOVIT D3 [Concomitant]
     Dosage: 2 DF, QW
  4. LAMISIL [Suspect]
     Indication: NAIL TINEA
     Dosage: 250 MG/D
     Route: 048
     Dates: start: 20041111, end: 20050302

REACTIONS (7)
  - BLOOD CREATININE INCREASED [None]
  - BLOOD PHOSPHORUS INCREASED [None]
  - BLOOD SODIUM INCREASED [None]
  - BLOOD THYROID STIMULATING HORMONE INCREASED [None]
  - HYPOTHYROIDISM [None]
  - THYROXINE ABNORMAL [None]
  - TRI-IODOTHYRONINE DECREASED [None]
